FAERS Safety Report 7762889 (Version 11)
Quarter: 2018Q4

REPORT INFORMATION
  Report Type: Spontaneous
  Country: GB (occurrence: GB)
  Receive Date: 20110117
  Receipt Date: 20181010
  Transmission Date: 20190205
  Serious: Yes (Life-Threatening, Hospitalization, Other)
  Sender: FDA-Public Use
  Company Number: GB-PFIZER INC-2011007837

PATIENT
  Age: 34 Year
  Sex: Male

DRUGS (7)
  1. AMLODIPINE BESILATE [Suspect]
     Active Substance: AMLODIPINE BESYLATE
     Indication: INTENTIONAL OVERDOSE
     Dosage: UNK
     Route: 065
  2. DIAZEPAM. [Suspect]
     Active Substance: DIAZEPAM
     Dosage: 140 MG, UNK
     Route: 065
  3. DOXAZOSIN MESILATE [Suspect]
     Active Substance: DOXAZOSIN MESYLATE
     Indication: INTENTIONAL OVERDOSE
     Dosage: UNK
     Route: 065
  4. CITALOPRAM [Suspect]
     Active Substance: CITALOPRAM HYDROBROMIDE
     Indication: INTENTIONAL OVERDOSE
     Dosage: 240 MG, UNK
     Route: 065
  5. PERINDOPRIL [Suspect]
     Active Substance: PERINDOPRIL
     Indication: INTENTIONAL OVERDOSE
     Dosage: UNK
     Route: 065
  6. TEMAZEPAM. [Suspect]
     Active Substance: TEMAZEPAM
     Dosage: 120 MG, UNK
     Route: 065
  7. GALENIC /PARACETAMOL/CODEINE/ [Suspect]
     Active Substance: ACETAMINOPHEN\CODEINE PHOSPHATE
     Indication: INTENTIONAL OVERDOSE
     Dosage: UNK

REACTIONS (9)
  - Suicide attempt [Recovered/Resolved]
  - Metabolic acidosis [Recovered/Resolved]
  - Heart rate increased [Recovered/Resolved]
  - Hypotension [Recovered/Resolved]
  - Loss of consciousness [Recovered/Resolved]
  - Renal failure [Recovering/Resolving]
  - Hypokalaemia [Recovered/Resolved]
  - Hypoxia [Recovered/Resolved]
  - Crystalluria [Recovered/Resolved]
